FAERS Safety Report 9122561 (Version 2)
Quarter: 2013Q2

REPORT INFORMATION
  Report Type: Spontaneous
  Country: US (occurrence: None)
  Receive Date: 20130222
  Receipt Date: 20130401
  Transmission Date: 20140414
  Serious: Yes (Death, Life-Threatening, Hospitalization)
  Sender: FDA-Public Use
  Company Number: 2013US-004576

PATIENT
  Age: 58 Year
  Sex: Male
  Weight: 124.6 kg

DRUGS (15)
  1. OMONTYS (PEGINESATIDE) SOLUTION FOR INJECTION [Suspect]
     Indication: NEPHROGENIC ANAEMIA
     Dosage: 15 MG, Q 4 WEEKS, INTRAVENOUS
     Route: 042
     Dates: start: 20130211, end: 20130211
  2. EPOGEN [Concomitant]
  3. NEPHROCAPS [Concomitant]
  4. TOPROL [Concomitant]
  5. NEXIUM (ESOMEPRAZOLE MAGNESIUM) [Concomitant]
  6. NEURONTIN (GABAPENTIN) [Concomitant]
  7. LANTUS (INSULIN GLARGINE) [Concomitant]
  8. HUMALOG (INSULIN LISPRO) [Concomitant]
  9. GLYBURIDE (GLIBENCLAMIDE) [Concomitant]
  10. COLCHICINE (COLCHICINE) [Concomitant]
  11. COENZYME Q10 (UBIDECARENONE) [Concomitant]
  12. ATORVASTATIN (ATORVASTATIN) [Concomitant]
  13. ACCUPRIL (QUINAPRIL HYDROCHLORIDE) [Concomitant]
  14. RENVELA (SEVELAMER CARBONATE) [Concomitant]
  15. HEPARIN (HEPARIN) [Concomitant]

REACTIONS (7)
  - Cardio-respiratory arrest [None]
  - Loss of consciousness [None]
  - Anaphylactic shock [None]
  - Electroencephalogram abnormal [None]
  - Bradycardia [None]
  - Nausea [None]
  - Anxiety [None]
